FAERS Safety Report 4888966-7 (Version None)
Quarter: 2006Q1

REPORT INFORMATION
  Report Type: 
  Country: None (occurrence: None)
  Receive Date: 20060123
  Receipt Date: 20050421
  Transmission Date: 20060701
  Serious: Yes (Hospitalization)
  Sender: FDA-Public Use
  Company Number: US-MERCK-0504USA04261

PATIENT
  Age: 42 Year
  Sex: Male
  Weight: 111 kg

DRUGS (12)
  1. VIOXX [Suspect]
     Indication: BACK PAIN
     Route: 048
     Dates: start: 20020101, end: 20040901
  2. BEXTRA [Concomitant]
     Indication: PAIN
     Route: 065
  3. OXYCONTIN [Concomitant]
     Indication: PAIN
     Route: 048
  4. NEURONTIN [Concomitant]
     Route: 065
  5. VALIUM [Concomitant]
     Indication: MUSCLE RELAXANT THERAPY
     Route: 048
  6. NITROGLYCERIN [Concomitant]
     Indication: CHEST PAIN
     Route: 065
  7. GABITRIL [Concomitant]
     Indication: SLEEP DISORDER
     Route: 048
  8. BENADRYL [Concomitant]
     Indication: SLEEP DISORDER
     Route: 065
  9. EFFEXOR [Concomitant]
     Indication: DEPRESSION
     Route: 048
  10. WELLBUTRIN [Concomitant]
     Indication: DEPRESSION
     Route: 048
  11. LIDODERM [Concomitant]
     Route: 030
  12. OXYCODONE [Concomitant]
     Route: 048

REACTIONS (3)
  - CEREBROVASCULAR ACCIDENT [None]
  - CHEST PAIN [None]
  - TRANSIENT ISCHAEMIC ATTACK [None]
